FAERS Safety Report 5772910-4 (Version None)
Quarter: 2008Q2

REPORT INFORMATION
  Report Type: 
  Country: None (occurrence: None)
  Receive Date: 20080613
  Receipt Date: 20080603
  Transmission Date: 20081010
  Serious: Yes (Other)
  Sender: FDA-Public Use
  Company Number: US-PFIZER INC-2008046986

PATIENT
  Sex: Female
  Weight: 49 kg

DRUGS (8)
  1. CHANTIX [Interacting]
     Indication: SMOKING CESSATION THERAPY
  2. CYMBALTA [Suspect]
  3. AUGMENTIN '125' [Suspect]
     Indication: PNEUMONIA
  4. ALCOHOL [Interacting]
  5. IBUROFEN [Concomitant]
     Indication: PAIN
  6. VITAMINS [Concomitant]
  7. HERBAL PREPARATION [Concomitant]
  8. ANTIDIARRHOEAL MICROORGANISMS [Concomitant]

REACTIONS (110)
  - ABNORMAL DREAMS [None]
  - ACNE [None]
  - AGGRESSION [None]
  - ALANINE AMINOTRANSFERASE INCREASED [None]
  - ALCOHOL INTERACTION [None]
  - ALCOHOL POISONING [None]
  - ANGINA PECTORIS [None]
  - ANTINUCLEAR ANTIBODY POSITIVE [None]
  - ANXIETY [None]
  - ARRHYTHMIA [None]
  - ATTENTION DEFICIT/HYPERACTIVITY DISORDER [None]
  - BACK PAIN [None]
  - BLOOD BILIRUBIN INCREASED [None]
  - BLOOD GLUCOSE INCREASED [None]
  - BRADYCARDIA [None]
  - CARBON DIOXIDE DECREASED [None]
  - CARDIAC FLUTTER [None]
  - CHEST DISCOMFORT [None]
  - CHROMATURIA [None]
  - CONJUNCTIVITIS [None]
  - CONSTIPATION [None]
  - CRYING [None]
  - DEPRESSION [None]
  - DERMATITIS [None]
  - DIARRHOEA [None]
  - DISORIENTATION [None]
  - DISSOCIATION [None]
  - DISTURBANCE IN ATTENTION [None]
  - DIZZINESS [None]
  - DROOLING [None]
  - DRUG INTERACTION [None]
  - DRY SKIN [None]
  - DYSPHAGIA [None]
  - DYSPNOEA [None]
  - DYSURIA [None]
  - EMOTIONAL DISORDER [None]
  - ERUCTATION [None]
  - EUPHORIC MOOD [None]
  - EYE PAIN [None]
  - FALL [None]
  - FATIGUE [None]
  - FEAR [None]
  - FIBROMYALGIA [None]
  - GAIT DISTURBANCE [None]
  - GENERALISED ANXIETY DISORDER [None]
  - GINGIVAL BLEEDING [None]
  - GINGIVITIS [None]
  - HEARING IMPAIRED [None]
  - HEART RATE INCREASED [None]
  - HEPATIC ENZYME INCREASED [None]
  - HOT FLUSH [None]
  - HYPERHIDROSIS [None]
  - HYPERSENSITIVITY [None]
  - HYPERTENSION [None]
  - IMMUNE SYSTEM DISORDER [None]
  - IMPAIRED DRIVING ABILITY [None]
  - INFLUENZA LIKE ILLNESS [None]
  - INSOMNIA [None]
  - IRRITABILITY [None]
  - LEUKOCYTOSIS [None]
  - LIBIDO DECREASED [None]
  - LOSS OF CONSCIOUSNESS [None]
  - LYMPHADENOPATHY [None]
  - MALAISE [None]
  - MEAN CELL HAEMOGLOBIN INCREASED [None]
  - MEAN CELL VOLUME INCREASED [None]
  - MEMORY IMPAIRMENT [None]
  - MENSTRUAL DISORDER [None]
  - MENTAL IMPAIRMENT [None]
  - MIGRAINE [None]
  - MOOD SWINGS [None]
  - MOTOR DYSFUNCTION [None]
  - MUSCLE SPASMS [None]
  - MUSCLE TWITCHING [None]
  - MUSCULOSKELETAL PAIN [None]
  - NERVOUS SYSTEM DISORDER [None]
  - ORAL PUSTULE [None]
  - ORGAN FAILURE [None]
  - OSTEOPOROSIS [None]
  - PAIN [None]
  - PAIN IN EXTREMITY [None]
  - PALPITATIONS [None]
  - PANIC ATTACK [None]
  - PHARYNGITIS STREPTOCOCCAL [None]
  - PHARYNGOLARYNGEAL PAIN [None]
  - PHOTOSENSITIVITY REACTION [None]
  - PNEUMONIA [None]
  - POISONING [None]
  - POLLAKIURIA [None]
  - POST-TRAUMATIC STRESS DISORDER [None]
  - PRURITUS [None]
  - PSYCHIATRIC SYMPTOM [None]
  - PSYCHOMOTOR HYPERACTIVITY [None]
  - PSYCHOTIC DISORDER [None]
  - RESTLESS LEGS SYNDROME [None]
  - SCHIZOPHRENIA [None]
  - SEROTONIN SYNDROME [None]
  - SKIN LESION [None]
  - SOCIAL AVOIDANT BEHAVIOUR [None]
  - SUICIDAL IDEATION [None]
  - SWELLING [None]
  - THINKING ABNORMAL [None]
  - THIRST [None]
  - THYROID FUNCTION TEST ABNORMAL [None]
  - TUNNEL VISION [None]
  - URTICARIA [None]
  - VERTIGO [None]
  - VIRAL INFECTION [None]
  - VISION BLURRED [None]
  - VISUAL FIELD DEFECT [None]
